FAERS Safety Report 10023947 (Version 1)
Quarter: 2014Q1

REPORT INFORMATION
  Report Type: Report from Study
  Country: EG (occurrence: EG)
  Receive Date: 20140320
  Receipt Date: 20140320
  Transmission Date: 20141002
  Serious: Yes (Other)
  Sender: FDA-Public Use
  Company Number: EG-ASTRAZENECA-2014SE17071

PATIENT
  Age: 0 Week
  Sex: 0

DRUGS (2)
  1. BUPIVACAINE [Suspect]
     Indication: SPINAL ANAESTHESIA
     Route: 064
  2. FENTANYL [Suspect]
     Indication: SPINAL ANAESTHESIA
     Route: 064

REACTIONS (1)
  - Foetal heart rate abnormal [Unknown]
